FAERS Safety Report 15635081 (Version 3)
Quarter: 2019Q1

REPORT INFORMATION
  Report Type: Report from Study
  Country: None (occurrence: AT)
  Receive Date: 20181119
  Receipt Date: 20190104
  Transmission Date: 20190417
  Serious: Yes (Hospitalization)
  Sender: FDA-Public Use
  Company Number: AT-ABBVIE-18S-009-2544019-00

PATIENT
  Age: 77 Year
  Sex: Female

DRUGS (3)
  1. DUODOPA [Suspect]
     Active Substance: CARBIDOPA\LEVODOPA
     Indication: PARKINSON^S DISEASE
     Dosage: MD: 3, CR DAYTIME: 5, CR NOCTURAL: 5, ED: 2?DAILY
     Route: 050
     Dates: start: 20180910, end: 2018
  2. DUODOPA [Suspect]
     Active Substance: CARBIDOPA\LEVODOPA
     Dosage: CR NOCTURAL: 4.3 ML/H
     Route: 050
     Dates: start: 2019
  3. DUODOPA [Suspect]
     Active Substance: CARBIDOPA\LEVODOPA
     Dosage: MD: 3 ML, CR DAYTIME: 4.3 ML/H,  ED: 3 ML
     Route: 050
     Dates: start: 2018, end: 2019

REACTIONS (7)
  - On and off phenomenon [Not Recovered/Not Resolved]
  - Drug ineffective [Unknown]
  - Hypertensive crisis [Recovering/Resolving]
  - Nausea [Recovering/Resolving]
  - Vomiting [Not Recovered/Not Resolved]
  - Nausea [Recovering/Resolving]
  - Device dislocation [Unknown]

NARRATIVE: CASE EVENT DATE: 2018
